FAERS Safety Report 9760224 (Version 1)
Quarter: 2013Q4

REPORT INFORMATION
  Report Type: Spontaneous
  Country: US (occurrence: US)
  Receive Date: 20131216
  Receipt Date: 20131216
  Transmission Date: 20140711
  Serious: No
  Sender: FDA-Public Use
  Company Number: US-BAYER-2013-151871

PATIENT
  Sex: 0

DRUGS (1)
  1. GADAVIST [Suspect]
     Indication: NERVOUS SYSTEM DISORDER
     Dosage: 30 ML, UNK
     Route: 042
     Dates: start: 20130918, end: 20130918

REACTIONS (1)
  - Vomiting projectile [Recovered/Resolved]
